FAERS Safety Report 4335062-3 (Version None)
Quarter: 2004Q2

REPORT INFORMATION
  Report Type: 
  Country: None (occurrence: None)
  Receive Date: 20040408
  Receipt Date: 20040329
  Transmission Date: 20050107
  Serious: Yes (Hospitalization)
  Sender: FDA-Public Use
  Company Number: JP-GLAXOSMITHKLINE-B0328795A

PATIENT
  Age: 50 Year

DRUGS (7)
  1. TAGAMET [Suspect]
     Indication: GASTRITIS
     Dosage: 200MG TWICE PER DAY
     Route: 065
     Dates: start: 20040318, end: 20040325
  2. CATAPRES [Concomitant]
     Dosage: 3TAB PER DAY
     Route: 048
  3. SOLON [Concomitant]
     Dosage: 3G PER DAY
     Route: 048
  4. CALTAN [Concomitant]
     Dosage: 3TAB PER DAY
     Route: 048
  5. FLUCAM [Concomitant]
     Dosage: 1CAP PER DAY
     Route: 048
  6. TAKEPRON [Concomitant]
     Route: 048
     Dates: start: 20040101, end: 20040317
  7. DIALYSIS [Concomitant]

REACTIONS (1)
  - CONVULSION [None]
